FAERS Safety Report 8283236-1 (Version None)
Quarter: 2012Q2

REPORT INFORMATION
  Report Type: 
  Country: None (occurrence: None)
  Receive Date: 20120413
  Receipt Date: 20120410
  Transmission Date: 20120825
  Serious: Yes (Other)
  Sender: FDA-Public Use
  Company Number: US-MERCK-1111USA02466

PATIENT
  Age: 69 Year
  Sex: Female
  Weight: 55 kg

DRUGS (8)
  1. FOSAMAX [Suspect]
     Indication: OSTEOPOROSIS
     Route: 048
     Dates: start: 20000414, end: 20010918
  2. FOSAMAX [Suspect]
     Route: 048
  3. ALENDRONATE SODIUM [Suspect]
     Indication: OSTEOPOROSIS
     Route: 048
     Dates: start: 20090217
  4. BONIVA [Suspect]
     Indication: OSTEOPOROSIS
     Route: 048
     Dates: start: 20070101, end: 20101105
  5. FOSAMAX [Suspect]
     Route: 048
     Dates: start: 19960101, end: 20090118
  6. FOSAMAX [Suspect]
     Route: 048
     Dates: start: 20011126, end: 20090118
  7. FOSAMAX PLUS D [Suspect]
     Indication: OSTEOPOROSIS
     Route: 048
  8. FOSAMAX [Suspect]
     Route: 048
     Dates: start: 20000414, end: 20090118

REACTIONS (14)
  - OSTEONECROSIS OF JAW [None]
  - ATROPHIC VULVOVAGINITIS [None]
  - SEASONAL ALLERGY [None]
  - ARTHRITIS [None]
  - ERYTHEMA [None]
  - PERIODONTAL DISEASE [None]
  - TOOTH EXTRACTION [None]
  - RENAL DISORDER [None]
  - BREAST CANCER [None]
  - CATARACT [None]
  - ANXIETY [None]
  - ORAL TORUS [None]
  - UTERINE CERVIX ATROPHY [None]
  - JOINT DISLOCATION [None]
